FAERS Safety Report 4646654-6 (Version None)
Quarter: 2005Q2

REPORT INFORMATION
  Report Type: 
  Country: None (occurrence: None)
  Receive Date: 20050425
  Receipt Date: 20050411
  Transmission Date: 20051028
  Serious: Yes (Death)
  Sender: FDA-Public Use
  Company Number: 05P-163-0296979-00

PATIENT
  Sex: Female

DRUGS (4)
  1. HUMIRA [Suspect]
     Indication: RHEUMATOID ARTHRITIS
     Dosage: 40 MG, 1 IN 1WK, SUBCUTANEOUS
     Route: 058
     Dates: start: 20040501
  2. HYDROXYCHLOROQUINE PHOSPHATE [Concomitant]
  3. METHOTREXATE SODIUM [Concomitant]
  4. AZATHIOPRINE [Concomitant]

REACTIONS (1)
  - AORTIC ANEURYSM RUPTURE [None]
